FAERS Safety Report 21305872 (Version 4)
Quarter: 2023Q2

REPORT INFORMATION
  Report Type: Report from Study
  Country: CA (occurrence: CA)
  Receive Date: 20220908
  Receipt Date: 20230627
  Transmission Date: 20230722
  Serious: Yes (Other)
  Sender: FDA-Public Use
  Company Number: CA-JNJFOC-20220912254

PATIENT
  Age: 7 Decade
  Sex: Female
  Weight: 69 kg

DRUGS (2)
  1. STELARA [Suspect]
     Active Substance: USTEKINUMAB
     Indication: Crohn^s disease
     Dosage: EXPIRY DATE: AUG-2025. PATIENT RECEIVED INJECTION ON 22-FEB-2023, EXPIRY DATE: 31-OCT-2025
     Route: 058
  2. STELARA [Suspect]
     Active Substance: USTEKINUMAB

REACTIONS (9)
  - Vitamin B12 deficiency [Recovering/Resolving]
  - Intestinal resection [Unknown]
  - Tooth infection [Unknown]
  - Paraesthesia [Recovered/Resolved]
  - Insomnia [Recovering/Resolving]
  - Post procedural inflammation [Unknown]
  - Rash pruritic [Recovered/Resolved]
  - Tremor [Recovered/Resolved]
  - Pyrexia [Recovered/Resolved]

NARRATIVE: CASE EVENT DATE: 20230101
